FAERS Safety Report 21161848 (Version 1)
Quarter: 2022Q3

REPORT INFORMATION
  Report Type: Spontaneous
  Country: FR (occurrence: FR)
  Receive Date: 20220802
  Receipt Date: 20220802
  Transmission Date: 20221026
  Serious: Yes (Other)
  Sender: FDA-Public Use
  Company Number: FR-Merck Healthcare KGaA-9324343

PATIENT
  Age: 70 Year
  Weight: 94 kg

DRUGS (3)
  1. METFORMIN [Suspect]
     Active Substance: METFORMIN HYDROCHLORIDE
     Indication: Type 2 diabetes mellitus
     Route: 065
  2. LEVOTHYROXINE [Suspect]
     Active Substance: LEVOTHYROXINE
     Indication: Product used for unknown indication
     Route: 065
  3. INSULIN NOS [Concomitant]
     Active Substance: INSULIN NOS
     Indication: Type 2 diabetes mellitus

REACTIONS (9)
  - Blood pressure increased [Not Recovered/Not Resolved]
  - Glycosylated haemoglobin increased [Unknown]
  - Overdose [Unknown]
  - Weight decreased [Unknown]
  - Blood thyroid stimulating hormone decreased [Unknown]
  - Blood glucose increased [Recovering/Resolving]
  - Dehydration [Unknown]
  - Decreased appetite [Unknown]
  - Diarrhoea [Unknown]
